FAERS Safety Report 4590489-X (Version None)
Quarter: 2005Q1

REPORT INFORMATION
  Report Type: 
  Country: None (occurrence: None)
  Receive Date: 20050217
  Receipt Date: 20041119
  Transmission Date: 20050727
  Serious: Yes (Death, Hospitalization, Other)
  Sender: FDA-Public Use
  Company Number: 2004098589

PATIENT
  Sex: Female

DRUGS (15)
  1. CELEBREX [Suspect]
     Indication: ARTHRALGIA
     Dosage: (200 MG, 1 IN TO 2 TIMES DAILY)
     Dates: start: 19990101, end: 20010101
  2. DILANTIN [Concomitant]
     Indication: CONVULSION
     Dosage: 400 MG (100 MG, 1 IN 6 HR)
     Dates: start: 19990101, end: 20040223
  3. DETROL LA [Suspect]
     Indication: BLADDER DISORDER
  4. DETROL LA [Suspect]
     Indication: BLADDER DISORDER
     Dates: end: 20010101
  5. WARFARIN SODIUM [Suspect]
     Indication: ILL-DEFINED DISORDER
  6. POTASSIUM CHLORIDE [Concomitant]
  7. RISPERDAL [Concomitant]
  8. DIGOXIN [Concomitant]
  9. FUROSEMIDE [Concomitant]
  10. METOLAZONE [Concomitant]
  11. ZOLPIDEM TARTRATE [Concomitant]
  12. CONJUGATED ESTROGENS [Concomitant]
  13. LEVOTHYROXINE SODIUM [Concomitant]
  14. BACTRIM [Concomitant]
  15. PHYTONADIONE [Concomitant]

REACTIONS (31)
  - ABDOMINAL DISTENSION [None]
  - ANTICONVULSANT DRUG LEVEL DECREASED [None]
  - BLADDER DISORDER [None]
  - CARDIAC DISORDER [None]
  - CHEST PAIN [None]
  - CONDITION AGGRAVATED [None]
  - CONVULSION [None]
  - DEMENTIA [None]
  - DRUG INEFFECTIVE [None]
  - DYSPNOEA [None]
  - EPISTAXIS [None]
  - FLUID RETENTION [None]
  - GASTRIC DISORDER [None]
  - GASTRIC HAEMORRHAGE [None]
  - HAEMATOMA [None]
  - HIP SURGERY [None]
  - HYPOTENSION [None]
  - IMPLANT SITE INFECTION [None]
  - INTERNATIONAL NORMALISED RATIO INCREASED [None]
  - KIDNEY INFECTION [None]
  - LIMB INJURY [None]
  - PACEMAKER COMPLICATION [None]
  - PHLEBOTHROMBOSIS [None]
  - PLEURAL EFFUSION [None]
  - POST PROCEDURAL COMPLICATION [None]
  - PULMONARY HYPERTENSION [None]
  - PULMONARY THROMBOSIS [None]
  - RENAL FAILURE [None]
  - SIMPLE PARTIAL SEIZURES [None]
  - SLEEP APNOEA SYNDROME [None]
  - SOMNOLENCE [None]
